FAERS Safety Report 6885917-0 (Version None)
Quarter: 2010Q3

REPORT INFORMATION
  Report Type: 
  Country: None (occurrence: None)
  Receive Date: 20100729
  Receipt Date: 20080616
  Transmission Date: 20110219
  Serious: No
  Sender: FDA-Public Use
  Company Number: US-PFIZER INC-2008051018

PATIENT
  Sex: Female
  Weight: 72.57 kg

DRUGS (3)
  1. QUINAPRIL HCL [Suspect]
     Indication: HYPERTENSION
     Dates: start: 20080605
  2. ATORVASTATIN [Concomitant]
  3. LISINOPRIL [Concomitant]

REACTIONS (1)
  - ALOPECIA [None]
